FAERS Safety Report 5196111-6 (Version None)
Quarter: 2006Q4

REPORT INFORMATION
  Report Type: 
  Country: None (occurrence: None)
  Receive Date: 20061226
  Receipt Date: 20061221
  Transmission Date: 20070319
  Serious: Yes (Hospitalization, Other)
  Sender: FDA-Public Use
  Company Number: HQWYE887520APR06

PATIENT
  Age: 63 Year
  Sex: Female

DRUGS (4)
  1. PANTOPRAZOLE SODIUM [Suspect]
     Indication: ABDOMINAL PAIN UPPER
     Dosage: ^SOME/DAY 40 MG^ ORAL
     Route: 048
     Dates: start: 20060322, end: 20060323
  2. PANTOPRAZOLE SODIUM [Suspect]
     Indication: GASTRIC ULCER
     Dosage: ^SOME/DAY 40 MG^ ORAL
     Route: 048
     Dates: start: 20060322, end: 20060323
  3. SIMVASTATIN [Concomitant]
  4. OMEPRAZOLE [Concomitant]

REACTIONS (10)
  - BLOOD AMYLASE INCREASED [None]
  - BLOOD URIC ACID INCREASED [None]
  - HAEMODIALYSIS [None]
  - HYPERCHOLESTEROLAEMIA [None]
  - LABORATORY TEST ABNORMAL [None]
  - LIPASE INCREASED [None]
  - NEPHROGENIC ANAEMIA [None]
  - RENAL FAILURE ACUTE [None]
  - RENAL HYPERTENSION [None]
  - VOMITING [None]
